FAERS Safety Report 5497592-0 (Version None)
Quarter: 2007Q4

REPORT INFORMATION
  Report Type: 
  Country: None (occurrence: None)
  Receive Date: 20071025
  Receipt Date: 20070102
  Transmission Date: 20080405
  Serious: No
  Sender: FDA-Public Use
  Company Number: A0631451A

PATIENT
  Age: 58 Year
  Sex: Female

DRUGS (5)
  1. ADVAIR DISKUS 100/50 [Suspect]
     Indication: ASTHMA
     Dosage: 1PUFF TWICE PER DAY
     Route: 055
     Dates: start: 20061001, end: 20061201
  2. SYNTHROID [Concomitant]
     Dosage: 112MCG PER DAY
  3. KLONOPIN [Concomitant]
     Dosage: .5MG PER DAY
  4. LEXAPRO [Concomitant]
     Dosage: 10MG PER DAY
  5. XOPENEX [Concomitant]

REACTIONS (3)
  - PHARMACEUTICAL PRODUCT COMPLAINT [None]
  - PHARYNGOLARYNGEAL PAIN [None]
  - PULMONARY FUNCTION TEST DECREASED [None]
